FAERS Safety Report 9707279 (Version 1)
Quarter: 2013Q4

REPORT INFORMATION
  Report Type: Spontaneous
  Country: NL (occurrence: NL)
  Receive Date: 20131125
  Receipt Date: 20131125
  Transmission Date: 20140711
  Serious: Yes (Hospitalization)
  Sender: FDA-Public Use
  Company Number: NL-SA-2013SA118061

PATIENT
  Sex: Male

DRUGS (2)
  1. JEVTANA [Suspect]
     Indication: PROSTATE CANCER
     Route: 051
  2. JEVTANA [Suspect]
     Indication: PROSTATE CANCER
     Route: 051

REACTIONS (1)
  - Hypokalaemia [Recovering/Resolving]
